FAERS Safety Report 17027355 (Version 1)
Quarter: 2019Q4

REPORT INFORMATION
  Report Type: Spontaneous
  Country: US (occurrence: US)
  Receive Date: 20191113
  Receipt Date: 20191113
  Transmission Date: 20200122
  Serious: Yes (Life-Threatening, Hospitalization, Other)
  Sender: FDA-Public Use
  Company Number: US-JNJFOC-20191100966

PATIENT
  Age: 36 Year
  Sex: Male

DRUGS (1)
  1. HALOPERIDOL. [Suspect]
     Active Substance: HALOPERIDOL
     Indication: AGITATION
     Dosage: ESCALATING DOSES
     Route: 065

REACTIONS (7)
  - Cardiomyopathy [Recovering/Resolving]
  - Sinus bradycardia [Recovering/Resolving]
  - Ventricular tachycardia [Recovered/Resolved]
  - Seizure [Recovering/Resolving]
  - Neuroleptic malignant syndrome [Recovering/Resolving]
  - Ventricular hypokinesia [Recovering/Resolving]
  - Autonomic nervous system imbalance [Recovering/Resolving]
